FAERS Safety Report 9454448 (Version 2)
Quarter: 2013Q3

REPORT INFORMATION
  Report Type: Spontaneous
  Country: US (occurrence: US)
  Receive Date: 20130812
  Receipt Date: 20130827
  Transmission Date: 20140515
  Serious: No
  Sender: FDA-Public Use
  Company Number: US-009507513-1307USA008277

PATIENT
  Sex: Female
  Weight: 56.69 kg

DRUGS (3)
  1. PUREGON PEN [Suspect]
     Indication: IN VITRO FERTILISATION
     Dosage: 75 IU OF FOLLISTIM DAILY
     Route: 058
     Dates: start: 20130617, end: 20130624
  2. FOLLISTIM AQ CARTRIDGE [Suspect]
     Indication: IN VITRO FERTILISATION
     Dosage: 75 IU, UNK
     Route: 058
     Dates: start: 20130617, end: 20130624
  3. MENOPUR [Concomitant]

REACTIONS (5)
  - Drug ineffective [Unknown]
  - Inappropriate schedule of drug administration [Unknown]
  - Drug dose omission [Unknown]
  - Device malfunction [Unknown]
  - Incorrect dose administered by device [Unknown]
